FAERS Safety Report 4841795-2 (Version None)
Quarter: 2005Q4

REPORT INFORMATION
  Report Type: 
  Country: None (occurrence: None)
  Receive Date: 20051130
  Receipt Date: 20010525
  Transmission Date: 20060501
  Serious: Yes (Hospitalization)
  Sender: FDA-Public Use
  Company Number: AU-ROCHE-261090

PATIENT
  Age: 46 Year
  Sex: Male

DRUGS (9)
  1. PEG-INTERFERON ALFA 2A (RO 25-8310) [Suspect]
     Route: 058
     Dates: start: 20010406, end: 20010517
  2. PEG-INTERFERON ALFA 2A (RO 25-8310) [Suspect]
     Route: 058
     Dates: start: 20010602
  3. PLACEBO [Suspect]
     Route: 048
     Dates: start: 20010406
  4. ACETAMINOPHEN W/ CODEINE [Concomitant]
     Dates: start: 20010406
  5. BETHANIDINE [Concomitant]
     Dates: start: 20010406
  6. ACYCLOVIR [Concomitant]
     Dates: start: 20010406
  7. SAQUINAVIR [Concomitant]
     Dates: start: 20010406
  8. NELFINAVIR [Concomitant]
     Dates: start: 20010406
  9. RITONAVIR [Concomitant]

REACTIONS (2)
  - DRUG EFFECT DECREASED [None]
  - MIGRAINE [None]
